FAERS Safety Report 24631358 (Version 1)
Quarter: 2024Q4

REPORT INFORMATION
  Report Type: Spontaneous
  Country: US (occurrence: None)
  Receive Date: 20241118
  Receipt Date: 20241118
  Transmission Date: 20250115
  Serious: No
  Sender: Public
  Company Number: None

PATIENT
  Sex: Female

DRUGS (1)
  1. TALTZ [Suspect]
     Active Substance: IXEKIZUMAB
     Indication: Psoriasis
     Dosage: 80 MG EVERY 4 WEEKS UNDER THE SKIN
     Route: 058
     Dates: start: 20240916

REACTIONS (3)
  - Product complaint [None]
  - Incorrect dose administered [None]
  - Wrong technique in device usage process [None]
